FAERS Safety Report 24466188 (Version 1)
Quarter: 2024Q4

REPORT INFORMATION
  Report Type: Report from Study
  Country: US (occurrence: US)
  Receive Date: 20241018
  Receipt Date: 20241018
  Transmission Date: 20250114
  Serious: No
  Sender: ROCHE
  Company Number: US-ROCHE-3531987

PATIENT
  Age: 20 Year
  Sex: Female

DRUGS (5)
  1. XOLAIR [Suspect]
     Active Substance: OMALIZUMAB
     Indication: Urticaria
     Dosage: INJECT 2MLS 300MG TOTAL INTO SKIN OF 14 DAYS.
     Route: 050
  2. ALLEGRA [Concomitant]
     Active Substance: FEXOFENADINE HYDROCHLORIDE
  3. SINGULAIR [Concomitant]
     Active Substance: MONTELUKAST SODIUM
  4. ZOFRAN [Concomitant]
     Active Substance: ONDANSETRON HYDROCHLORIDE
  5. AVAPRITINIB [Concomitant]
     Active Substance: AVAPRITINIB

REACTIONS (3)
  - Off label use [Unknown]
  - Off label use [Unknown]
  - Systemic mastocytosis [Unknown]
